FAERS Safety Report 7373565-8 (Version None)
Quarter: 2011Q1

REPORT INFORMATION
  Report Type: 
  Country: None (occurrence: None)
  Receive Date: 20110325
  Receipt Date: 20110316
  Transmission Date: 20110831
  Serious: No
  Sender: FDA-Public Use
  Company Number: US-BIOGENIDEC-2011BI010250

PATIENT
  Age: 40 Year
  Sex: Female

DRUGS (2)
  1. AMITRIPTYLINE [Concomitant]
  2. AVONEX [Suspect]
     Indication: MULTIPLE SCLEROSIS
     Route: 042
     Dates: start: 20110310

REACTIONS (4)
  - HEADACHE [None]
  - INSOMNIA [None]
  - HYPERAESTHESIA [None]
  - BURNING SENSATION [None]
